FAERS Safety Report 7625654-8 (Version None)
Quarter: 2011Q3

REPORT INFORMATION
  Report Type: 
  Country: None (occurrence: None)
  Receive Date: 20110721
  Receipt Date: 20110707
  Transmission Date: 20111222
  Serious: Yes (Hospitalization)
  Sender: FDA-Public Use
  Company Number: GB-JNJFOC-20110706606

PATIENT
  Age: 74 Year
  Sex: Male

DRUGS (6)
  1. BENDROFLUMETHIAZIDE [Concomitant]
  2. ASPIRIN AND DIPYRIDAMOLE [Concomitant]
  3. SIMVASTATIN [Concomitant]
  4. EPROSARTAN [Concomitant]
  5. XARELTO [Suspect]
     Indication: THROMBOSIS PROPHYLAXIS
     Route: 048
     Dates: start: 20110526, end: 20110620
  6. ATENOLOL [Concomitant]

REACTIONS (6)
  - RASH MACULO-PAPULAR [None]
  - DIARRHOEA [None]
  - VOMITING [None]
  - RASH ERYTHEMATOUS [None]
  - RASH [None]
  - NAUSEA [None]
